FAERS Safety Report 6741409-0 (Version None)
Quarter: 2010Q2

REPORT INFORMATION
  Report Type: 
  Country: None (occurrence: None)
  Receive Date: 20100524
  Receipt Date: 20100506
  Transmission Date: 20101027
  Serious: Yes (Hospitalization)
  Sender: FDA-Public Use
  Company Number: 2009-4315

PATIENT
  Age: 65 Year
  Sex: Male

DRUGS (8)
  1. SOMATULINE DEPOT [Suspect]
     Indication: CHRONIC MYELOID LEUKAEMIA
     Dosage: (,1 IN 4 WK),SUBCUTANEOUS
     Route: 058
     Dates: start: 20090602
  2. SOMATULINE DEPOT [Suspect]
     Indication: METASTASES TO LIVER
     Dosage: (,1 IN 4 WK),SUBCUTANEOUS
     Route: 058
     Dates: start: 20090602
  3. SOMATULINE DEPOT [Suspect]
     Indication: PANCREATIC CARCINOMA
     Dosage: (,1 IN 4 WK),SUBCUTANEOUS
     Route: 058
     Dates: start: 20090602
  4. SOMATULINE DEPOT [Suspect]
  5. SOMATULINE DEPOT [Suspect]
  6. SOMATULINE DEPOT [Suspect]
  7. SOMATULINE DEPOT [Suspect]
  8. SOMATULINE DEPOT [Suspect]

REACTIONS (2)
  - DIARRHOEA [None]
  - OFF LABEL USE [None]
